FAERS Safety Report 7037572-7 (Version None)
Quarter: 2010Q4

REPORT INFORMATION
  Report Type: 
  Country: None (occurrence: None)
  Receive Date: 20101011
  Receipt Date: 20100924
  Transmission Date: 20110411
  Serious: Yes (Hospitalization, Other)
  Sender: FDA-Public Use
  Company Number: PHHY2010JP62322

PATIENT
  Sex: Female
  Weight: 42 kg

DRUGS (13)
  1. DIOVAN [Suspect]
     Dosage: 160 MG
     Route: 048
     Dates: start: 19930101, end: 20100810
  2. TEGRETOL [Suspect]
     Indication: FACIAL SPASM
     Dosage: 400 MG, DAILY
     Route: 048
     Dates: start: 19930101, end: 20100820
  3. TOLEDOMIN [Suspect]
     Indication: DEPRESSION
     Dosage: 50 MG, DAILY
     Route: 048
     Dates: start: 19930101, end: 20100820
  4. AMOXAN [Suspect]
     Indication: DEPRESSION
     Dosage: 25 MG, DAILY
     Route: 048
     Dates: start: 19930101, end: 20100820
  5. DOXAZOSIN MESYLATE [Concomitant]
     Indication: HYPERTENSION
     Dosage: 1 MG, DAILY
     Route: 048
     Dates: start: 20100810, end: 20100820
  6. RIVOTRIL [Concomitant]
     Indication: FACIAL SPASM
     Dosage: 3.0 G
     Route: 048
     Dates: start: 19930101, end: 20100820
  7. GASTER [Concomitant]
     Indication: GASTRITIS
     Dosage: 20 MG
     Route: 048
     Dates: start: 19930101, end: 20100907
  8. LIPITOR [Concomitant]
     Indication: HYPERLIPIDAEMIA
     Dosage: 10 MG
     Route: 048
     Dates: start: 19930101, end: 20100907
  9. AMLODIPINE [Concomitant]
     Indication: HYPERTENSION
     Dosage: 10 MG
     Route: 048
     Dates: start: 20100608
  10. KERLONG [Concomitant]
     Indication: HYPERTENSION
     Dosage: 10 MG
     Route: 048
     Dates: start: 20100604, end: 20100820
  11. DOXAZOSIN MESYLATE [Concomitant]
     Dosage: 1 MG
     Route: 048
     Dates: start: 20100810, end: 20100820
  12. OMEPRAL [Concomitant]
     Indication: DECREASED APPETITE
     Dosage: 20 MG
     Route: 048
     Dates: start: 20100815, end: 20100820
  13. NITROGLYCERIN [Concomitant]
     Indication: HYPERTENSION
     Dosage: 10 MG
     Route: 062
     Dates: start: 20100609, end: 20100907

REACTIONS (5)
  - ASTHENIA [None]
  - BLOOD PRESSURE INCREASED [None]
  - HYPONATRAEMIA [None]
  - INAPPROPRIATE ANTIDIURETIC HORMONE SECRETION [None]
  - LACUNAR INFARCTION [None]
